FAERS Safety Report 4824536-4 (Version None)
Quarter: 2005Q4

REPORT INFORMATION
  Report Type: 
  Country: None (occurrence: None)
  Receive Date: 20051108
  Receipt Date: 20051108
  Transmission Date: 20060501
  Serious: Yes (Other)
  Sender: FDA-Public Use
  Company Number: None

PATIENT
  Sex: Female

DRUGS (5)
  1. AVELOX [Suspect]
     Indication: UPPER RESPIRATORY TRACT INFECTION
     Dosage: 400 MG PO
     Route: 048
     Dates: start: 20051107, end: 20051114
  2. METFORMIN [Concomitant]
  3. ZOLOFT [Concomitant]
  4. GLIPIZIDE [Concomitant]
  5. DIOVAN [Concomitant]

REACTIONS (2)
  - CONDITION AGGRAVATED [None]
  - DYSKINESIA [None]
